FAERS Safety Report 15946562 (Version 1)
Quarter: 2019Q1

REPORT INFORMATION
  Report Type: Spontaneous
  Country: ES (occurrence: ES)
  Receive Date: 20190211
  Receipt Date: 20190211
  Transmission Date: 20190417
  Serious: Yes (Other)
  Sender: FDA-Public Use
  Company Number: ES-ALVOGEN-2019-ALVOGEN-098468

PATIENT
  Age: 62 Year
  Sex: Male

DRUGS (8)
  1. DIAZEPAM. [Interacting]
     Active Substance: DIAZEPAM
     Indication: INSOMNIA
     Dosage: 5 MG
     Route: 065
  2. OXYCODONE [Interacting]
     Active Substance: OXYCODONE
     Indication: MYOFASCIAL PAIN SYNDROME
     Route: 065
  3. TRAZODONE [Interacting]
     Active Substance: TRAZODONE HYDROCHLORIDE
     Indication: INSOMNIA
     Route: 065
  4. SERTRALINE [Interacting]
     Active Substance: SERTRALINE HYDROCHLORIDE
     Indication: PSYCHOTIC DISORDER
     Route: 065
  5. ATENOLOL. [Suspect]
     Active Substance: ATENOLOL
     Indication: ESSENTIAL HYPERTENSION
     Route: 065
  6. DILTIAZEM. [Interacting]
     Active Substance: DILTIAZEM
     Indication: HYPERTROPHIC CARDIOMYOPATHY
     Route: 065
  7. ACETYLSALICYLIC ACID [Interacting]
     Active Substance: ASPIRIN
     Indication: HYPERTROPHIC CARDIOMYOPATHY
     Route: 065
  8. AMITRIPTYLINE [Interacting]
     Active Substance: AMITRIPTYLINE
     Indication: MYOFASCIAL PAIN SYNDROME
     Route: 065

REACTIONS (4)
  - Fall [Unknown]
  - Loss of consciousness [Unknown]
  - Drug interaction [Unknown]
  - Incontinence [Unknown]
